FAERS Safety Report 19895182 (Version 2)
Quarter: 2021Q4

REPORT INFORMATION
  Report Type: Report from Study
  Country: US (occurrence: US)
  Receive Date: 20210929
  Receipt Date: 20211129
  Transmission Date: 20220303
  Serious: Yes (Other)
  Sender: FDA-Public Use
  Company Number: US-GLAXOSMITHKLINE-US2021150959

PATIENT
  Age: 71 Year
  Sex: Female

DRUGS (3)
  1. NIRAPARIB [Suspect]
     Active Substance: NIRAPARIB
     Indication: Fallopian tube cancer
     Dosage: 200 MG, QD
     Route: 048
     Dates: start: 20210705
  2. NIRAPARIB [Suspect]
     Active Substance: NIRAPARIB
     Dosage: 200 MG, QD
  3. NIRAPARIB [Suspect]
     Active Substance: NIRAPARIB
     Dosage: 200 MG, QD

REACTIONS (11)
  - Neuropathy peripheral [Not Recovered/Not Resolved]
  - Osteomalacia [Unknown]
  - Insomnia [Recovered/Resolved]
  - Blood pressure increased [Recovered/Resolved]
  - Dry skin [Not Recovered/Not Resolved]
  - Hyperkeratosis [Not Recovered/Not Resolved]
  - Hyperaesthesia [Not Recovered/Not Resolved]
  - Musculoskeletal stiffness [Unknown]
  - Endodontic procedure [Recovered/Resolved]
  - Drug monitoring procedure not performed [Unknown]
  - Off label use [Unknown]

NARRATIVE: CASE EVENT DATE: 20210701
